FAERS Safety Report 9637747 (Version 1)
Quarter: 2013Q4

REPORT INFORMATION
  Report Type: Spontaneous
  Country: US (occurrence: US)
  Receive Date: 20131022
  Receipt Date: 20131022
  Transmission Date: 20140711
  Serious: Yes (Other)
  Sender: FDA-Public Use
  Company Number: US-PFIZER INC-2013299075

PATIENT
  Age: 43 Year
  Sex: Female
  Weight: 71.2 kg

DRUGS (1)
  1. ADVIL MIGRAINE [Suspect]
     Indication: UTERINE SPASM
     Dosage: 800 MG, SINGLE
     Route: 048
     Dates: start: 20131011, end: 20131011

REACTIONS (3)
  - Off label use [Unknown]
  - Uterine haemorrhage [Recovered/Resolved]
  - Haemoglobin decreased [Unknown]
